FAERS Safety Report 6637057-3 (Version None)
Quarter: 2010Q1

REPORT INFORMATION
  Report Type: 
  Country: None (occurrence: None)
  Receive Date: 20100310
  Receipt Date: 20100217
  Transmission Date: 20100710
  Serious: Yes (Hospitalization, Other)
  Sender: FDA-Public Use
  Company Number: ADE2008-0393

PATIENT
  Age: 60 Year
  Sex: Female

DRUGS (7)
  1. PAROXETINE HCL [Suspect]
     Indication: DEPRESSION
     Dosage: ORAL
     Route: 048
  2. FENTANYL [Suspect]
     Indication: ANAESTHESIA
     Dosage: 200-800UG, IV
     Route: 042
  3. FENTANYL [Suspect]
     Indication: ANALGESIC THERAPY
     Dosage: 200-800UG, IV
     Route: 042
  4. ISOFLURANE [Concomitant]
  5. PROPOFOL [Concomitant]
  6. LEVOTHYROXINE SODIUM [Concomitant]
  7. ATRACURIUM BESYLATE [Concomitant]

REACTIONS (3)
  - DRUG INTERACTION [None]
  - HYPERTENSION [None]
  - SEROTONIN SYNDROME [None]
